FAERS Safety Report 10362991 (Version 1)
Quarter: 2014Q1

REPORT INFORMATION
  Report Type: Spontaneous
  Country: US (occurrence: None)
  Receive Date: 20140306
  Receipt Date: 20140306
  Transmission Date: 20141002
  Serious: Yes (Hospitalization)
  Sender: FDA-Public Use
  Company Number: 163-21880-13022078

PATIENT
  Age: 86 Year
  Sex: Female

DRUGS (20)
  1. REVLIMID (LENALIDOMIDE) (10 MILLIGRAM, CAPSULES) [Suspect]
     Indication: PLASMA CELL MYELOMA
     Dosage: 10 MG, 21 IN 21 D, PO
     Route: 048
     Dates: start: 20130109, end: 20130123
  2. ALKERAN (MELPHALAN) [Concomitant]
  3. DEXAMETHASONE (DEXAMETHASONE) [Concomitant]
  4. ALENDRONATE (ALENDRONATE SODIUM) [Concomitant]
  5. ASPIRIN (ACETYLSALICYLIC ACID) [Concomitant]
  6. BUMEX (BUMETANIDE) [Concomitant]
  7. CALCIUM +D (OS-CAL) [Concomitant]
  8. COREG (CARVEDILOL) [Concomitant]
  9. FISH OIL (FISH OIL) [Concomitant]
  10. GLUCOSAMINE (GLUCOSAMINE) [Concomitant]
  11. HYDRALAZINE (HYDRALAZINE) [Concomitant]
  12. IRON (IRON) [Concomitant]
  13. KLOR-CON M20 ER (POTASSIUM CHLORIDE) [Concomitant]
  14. MAGNESIUM (MAGNESIUM) [Concomitant]
  15. METOLAZONE (METOLAZONE) [Concomitant]
  16. PRILOSEC (OMEPRAZOLE) [Concomitant]
  17. ONGLYZA (SAXAGLIPTIN HYDROCHLORIDE) [Concomitant]
  18. REQUIP (ROPINIROLE HYDROCHLORIDE) [Concomitant]
  19. TYLENOL (PARACETAMOL) [Concomitant]
  20. PROCRIT (ERYTHROPOIETIN) [Concomitant]

REACTIONS (4)
  - Dyspnoea [None]
  - Fatigue [None]
  - Asthenia [None]
  - Muscle spasms [None]
